FAERS Safety Report 9869643 (Version 1)
Quarter: 2014Q1

REPORT INFORMATION
  Report Type: Spontaneous
  Country: US (occurrence: US)
  Receive Date: 20140205
  Receipt Date: 20140205
  Transmission Date: 20141002
  Serious: No
  Sender: FDA-Public Use
  Company Number: US-BAYER-2014-017958

PATIENT
  Age: 69 Year
  Sex: Female
  Weight: 60.77 kg

DRUGS (3)
  1. ALEVE CAPLET [Suspect]
     Indication: ANALGESIC THERAPY
     Dosage: 1 DF, PRN
     Route: 048
  2. CALCIUM [Concomitant]
  3. LUTEIN [Concomitant]

REACTIONS (1)
  - Drug ineffective [None]
